FAERS Safety Report 12249558 (Version 4)
Quarter: 2016Q2

REPORT INFORMATION
  Report Type: Spontaneous
  Country: CN (occurrence: CN)
  Receive Date: 20160408
  Receipt Date: 20160621
  Transmission Date: 20160815
  Serious: No
  Sender: FDA-Public Use
  Company Number: CN-009507513-1501CHN009820

PATIENT
  Age: 30 Year
  Sex: Female
  Weight: 57 kg

DRUGS (17)
  1. DIPHENHYDRAMINE HYDROCHLORIDE. [Concomitant]
     Active Substance: DIPHENHYDRAMINE HYDROCHLORIDE
     Dosage: 2 ML/CC, QD
     Route: 030
     Dates: start: 20150114, end: 20150114
  2. CIMETIDINE [Concomitant]
     Active Substance: CIMETIDINE
     Indication: PROPHYLAXIS
     Dosage: 0.4 G, QD, IVGTT
     Route: 041
     Dates: start: 20150114, end: 20150114
  3. CISPLATIN. [Concomitant]
     Active Substance: CISPLATIN
     Indication: CHEMOTHERAPY
     Dosage: (DAY 1) 40 MG, ONCE, TREATMENT CYCLE: 1/UNK; TREATMENT REGIMEN: PACLITAXEL AND DDP
     Route: 041
     Dates: start: 20150114, end: 20150114
  4. DEXAMETHASONE SODIUM PHOSPHATE. [Concomitant]
     Active Substance: DEXAMETHASONE SODIUM PHOSPHATE
     Indication: PROPHYLAXIS OF NAUSEA AND VOMITING
     Dosage: 20 MG, ONCE, IVGTT
     Route: 041
     Dates: start: 20150114, end: 20150114
  5. EMEND [Suspect]
     Active Substance: APREPITANT
     Dosage: 80 MG, ONCE, DAY 2 AND DAY3
     Route: 048
     Dates: start: 20150115, end: 20150116
  6. PACLITAXEL. [Concomitant]
     Active Substance: PACLITAXEL
     Indication: CHEMOTHERAPY
     Dosage: (DAY 1) 240 MG, CYCLICAL, TREATMENT REGIMEN: PACLITAXEL AND DDP, TREAMENT CYCLE 1/UNK
     Route: 041
     Dates: start: 20150114, end: 20150114
  7. TROPISETRON HYDROCHLORIDE [Concomitant]
     Active Substance: TROPISETRON HYDROCHLORIDE
     Indication: PROPHYLAXIS OF NAUSEA AND VOMITING
     Dosage: 5 MG, QD, IVGTT
     Route: 041
     Dates: start: 20150114, end: 20150118
  8. METOCLOPRAMIDE. [Concomitant]
     Active Substance: METOCLOPRAMIDE
     Indication: PROPHYLAXIS OF NAUSEA AND VOMITING
     Dosage: 2 ML/CC, QD
     Route: 030
     Dates: start: 20150114, end: 20150116
  9. CISPLATIN. [Concomitant]
     Active Substance: CISPLATIN
     Dosage: (DAY 2 AND 3) 30 MG,QD, TREATMENT CYCLE: 1/UNK; TREATMENT REGIMEN: PACLITAXEL AND DDP
     Route: 041
     Dates: start: 20150115, end: 20150116
  10. EMEND [Suspect]
     Active Substance: APREPITANT
     Indication: PROPHYLAXIS OF NAUSEA AND VOMITING
     Dosage: 125 MG, ONCE, DAY 1
     Route: 048
     Dates: start: 20150114, end: 20150114
  11. ALLOPURINOL. [Concomitant]
     Active Substance: ALLOPURINOL
     Indication: PROPHYLAXIS
     Dosage: STRENGTH 100 MG, TOTAL DAILY DOSE 3 TABLETS, TID
     Route: 048
     Dates: start: 20150114, end: 20150124
  12. DIPHENHYDRAMINE HYDROCHLORIDE. [Concomitant]
     Active Substance: DIPHENHYDRAMINE HYDROCHLORIDE
     Indication: PROPHYLAXIS AGAINST GASTROINTESTINAL ULCER
     Dosage: 2 ML/CC, QD
     Route: 030
     Dates: start: 20150115, end: 20150116
  13. PYRIDOXINE [Concomitant]
     Active Substance: PYRIDOXINE
     Indication: NUTRITIONAL SUPPLEMENTATION
     Dosage: 200 MG, QD, IVGTT
     Route: 041
     Dates: start: 20150115, end: 20150118
  14. ASCORBIC ACID. [Concomitant]
     Active Substance: ASCORBIC ACID
     Indication: NUTRITIONAL SUPPLEMENTATION
     Dosage: 2 G, QD, IVGTT
     Route: 041
     Dates: start: 20150115, end: 20150118
  15. FUROSEMIDE. [Concomitant]
     Active Substance: FUROSEMIDE
     Indication: DIURETIC THERAPY
     Dosage: 20 MG, ONCE
     Route: 042
     Dates: start: 20150116, end: 20150116
  16. PANTOPRAZOLE [Concomitant]
     Active Substance: PANTOPRAZOLE SODIUM
     Indication: PROPHYLAXIS OF NAUSEA AND VOMITING
     Dosage: 40 MG, QD, IVGTT
     Route: 041
     Dates: start: 20150114, end: 20150118
  17. LEVOCARNITINE. [Concomitant]
     Active Substance: LEVOCARNITINE
     Indication: NEOPLASM
     Dosage: 2 G, QD, IVGTT
     Route: 041
     Dates: start: 20150114, end: 20150118

REACTIONS (5)
  - Hepatic function abnormal [Recovered/Resolved]
  - Myalgia [Recovered/Resolved]
  - Constipation [Recovered/Resolved]
  - Erythema [Recovered/Resolved]
  - Blood potassium decreased [Recovering/Resolving]

NARRATIVE: CASE EVENT DATE: 20150116
